FAERS Safety Report 5215681-2 (Version None)
Quarter: 2007Q1

REPORT INFORMATION
  Report Type: 
  Country: None (occurrence: None)
  Receive Date: 20070123
  Receipt Date: 20070112
  Transmission Date: 20070707
  Serious: Yes (Death, Hospitalization)
  Sender: FDA-Public Use
  Company Number: BE-JNJFOC-20070102967

PATIENT
  Age: 83 Year
  Sex: Female

DRUGS (2)
  1. REMICADE [Suspect]
     Indication: COLITIS ULCERATIVE
     Route: 042
  2. CORTICOIDS [Concomitant]
     Route: 065

REACTIONS (2)
  - RESPIRATORY DISTRESS [None]
  - SEPSIS [None]
